FAERS Safety Report 7593609-8 (Version None)
Quarter: 2011Q3

REPORT INFORMATION
  Report Type: 
  Country: None (occurrence: None)
  Receive Date: 20110706
  Receipt Date: 20110630
  Transmission Date: 20111222
  Serious: Yes (Life-Threatening)
  Sender: FDA-Public Use
  Company Number: PHHY2011BR58410

PATIENT
  Age: 90 Year
  Sex: Female

DRUGS (2)
  1. LOSARTAN POTASSIUM [Suspect]
     Dosage: UNK
  2. RESERPINE [Suspect]
     Dosage: UNK

REACTIONS (2)
  - ASTHENIA [None]
  - APPARENT DEATH [None]
